FAERS Safety Report 7772216-8 (Version None)
Quarter: 2011Q3

REPORT INFORMATION
  Report Type: 
  Country: None (occurrence: None)
  Receive Date: 20110922
  Receipt Date: 20100205
  Transmission Date: 20111222
  Serious: No
  Sender: FDA-Public Use
  Company Number: US-ASTRAZENECA-2008UW24403

PATIENT
  Sex: Male
  Weight: 134.7 kg

DRUGS (6)
  1. SEROQUEL [Suspect]
     Dosage: ONE TABLET  BID AND 2 TABLET QHS
     Route: 048
     Dates: start: 19990303
  2. SEROQUEL [Suspect]
     Route: 048
     Dates: start: 19990420
  3. BUSPAR [Concomitant]
     Dates: start: 19990420
  4. SEROQUEL [Suspect]
     Dosage: ONE TABLET  BID AND 2 TABLET QHS
     Route: 048
     Dates: start: 19990518
  5. RISPERDAL [Concomitant]
     Dates: start: 19990303
  6. NEURONTIN [Concomitant]
     Dosage: 600 TO 900 MG
     Dates: start: 19990420

REACTIONS (4)
  - TYPE 2 DIABETES MELLITUS [None]
  - LIMB INJURY [None]
  - BLINDNESS [None]
  - PAIN IN EXTREMITY [None]
